FAERS Safety Report 18132514 (Version 1)
Quarter: 2020Q3

REPORT INFORMATION
  Report Type: Other
  Country: US (occurrence: US)
  Receive Date: 20200811
  Receipt Date: 20200811
  Transmission Date: 20201103
  Serious: Yes (Other)
  Sender: FDA-Public Use
  Company Number: US-ROCHE-2654053

PATIENT
  Sex: Female

DRUGS (2)
  1. LEXAPRO [Concomitant]
     Active Substance: ESCITALOPRAM OXALATE
     Dosage: ONGOING: YES
     Route: 048
  2. OCREVUS [Suspect]
     Active Substance: OCRELIZUMAB
     Indication: RELAPSING MULTIPLE SCLEROSIS
     Route: 042
     Dates: start: 201907

REACTIONS (5)
  - Central nervous system lesion [Unknown]
  - Vaginal haemorrhage [Unknown]
  - Weight increased [Unknown]
  - Respiratory disorder [Unknown]
  - Depression [Recovering/Resolving]
